FAERS Safety Report 4584833-7 (Version None)
Quarter: 2005Q1

REPORT INFORMATION
  Report Type: 
  Country: None (occurrence: None)
  Receive Date: 20050217
  Receipt Date: 20050112
  Transmission Date: 20050727
  Serious: Yes (Other)
  Sender: FDA-Public Use
  Company Number: 200510303US

PATIENT
  Age: 68 Year
  Sex: Male
  Weight: 92 kg

DRUGS (4)
  1. DOCETAXEL [Suspect]
     Indication: PANCREATIC CARCINOMA
     Route: 042
     Dates: start: 20041206, end: 20050120
  2. IRINOTECAN HCL [Suspect]
     Indication: PANCREATIC CARCINOMA
     Dates: start: 20041206, end: 20050120
  3. CETUXIMAB [Suspect]
     Indication: PANCREATIC CARCINOMA
     Dates: start: 20041220, end: 20050124
  4. ENOXAPARIN SODIUM [Concomitant]
     Dates: start: 20041206

REACTIONS (2)
  - DRUG TOXICITY [None]
  - HYPOMAGNESAEMIA [None]
